FAERS Safety Report 10524421 (Version 1)
Quarter: 2014Q4

REPORT INFORMATION
  Report Type: Spontaneous
  Country: US (occurrence: None)
  Receive Date: 20141015
  Receipt Date: 20141015
  Transmission Date: 20150528
  Serious: No
  Sender: FDA-Public Use
  Company Number: None

PATIENT
  Age: 52 Year
  Sex: Female
  Weight: 81.4 kg

DRUGS (11)
  1. MOUTHWASH: DIPHENHYDRAMINE-LIDOCAINE VISC-MAALOX [Concomitant]
  2. TRAMADOL(ULTRAM) [Concomitant]
  3. LISINOPRIL(PRINIVIL/ZESTRIL) [Concomitant]
  4. DEXAMETHASONE(DECADRON) [Concomitant]
  5. REVLIMID [Suspect]
     Active Substance: LENALIDOMIDE
     Indication: PLASMA CELL MYELOMA
     Dosage: 25MG 1X21/28 D CYCLE ORALLY?
     Route: 048
     Dates: start: 201407
  6. METFORIN(CLUCOPHAGE) [Concomitant]
  7. ATORVASTATIN(LIPITOR_ [Concomitant]
  8. TAMSULOSIN(FLOMAX) [Concomitant]
  9. HYDROMORPHONE(DILADID) [Concomitant]
  10. HYDROCONDONE-ACETAMINOPHEN [Concomitant]
  11. ASPIRIN. [Concomitant]
     Active Substance: ASPIRIN

REACTIONS (8)
  - Eyelid oedema [None]
  - Food craving [None]
  - Rash [None]
  - Myalgia [None]
  - Pain [None]
  - Fatigue [None]
  - Nausea [None]
  - Dysgeusia [None]

NARRATIVE: CASE EVENT DATE: 20140902
